FAERS Safety Report 9272319 (Version 1)
Quarter: 2013Q2

REPORT INFORMATION
  Report Type: Spontaneous
  Country: US (occurrence: US)
  Receive Date: 20130506
  Receipt Date: 20130506
  Transmission Date: 20140414
  Serious: No
  Sender: FDA-Public Use
  Company Number: US-ASTRAZENECA-2012SE96354

PATIENT
  Age: 82 Year
  Sex: Female
  Weight: 59 kg

DRUGS (11)
  1. PRILOSEC OTC [Suspect]
     Indication: GASTROOESOPHAGEAL REFLUX DISEASE
     Route: 048
     Dates: start: 20121224
  2. VITAMIN D [Concomitant]
     Dosage: UNKNOWN
  3. MULTIVITAMIN [Concomitant]
     Dosage: UNKNOWN
  4. CLONAZEPAM [Concomitant]
     Dosage: UNKNOWN
  5. GABAPENTIN [Concomitant]
     Dosage: UNKNOWN
  6. FLUOXETINE [Concomitant]
     Dosage: UNKNOWN
  7. NAMENDA [Concomitant]
     Dosage: UNKNOWN
  8. NISOLDIPINE [Concomitant]
     Dosage: UNKNOWN
  9. SIMVASTATIN [Concomitant]
     Dosage: UNKNOWN
  10. ROPINIROLE [Concomitant]
     Dosage: UNKNOWN
  11. BABY ASPIRIN [Concomitant]
     Dosage: UNKNOWN

REACTIONS (3)
  - Off label use [Unknown]
  - Incorrect dose administered [Unknown]
  - No adverse event [Unknown]
